FAERS Safety Report 8556758 (Version 5)
Quarter: 2014Q3

REPORT INFORMATION
  Report Type: Report from Study
  Country: US (occurrence: US)
  Receive Date: 20120511
  Receipt Date: 20140807
  Transmission Date: 20150326
  Serious: Yes (Other)
  Sender: FDA-Public Use
  Company Number: US-BIOGENIDEC-2012BI015218

PATIENT
  Age: 50 Year
  Sex: Male

DRUGS (2)
  1. TYSABRI [Suspect]
     Active Substance: NATALIZUMAB
     Indication: MULTIPLE SCLEROSIS
     Route: 042
     Dates: start: 20120402, end: 20120430
  2. TYSABRI [Suspect]
     Active Substance: NATALIZUMAB
     Indication: MULTIPLE SCLEROSIS
     Route: 042

REACTIONS (2)
  - Generalised tonic-clonic seizure [Recovered/Resolved]
  - Hypersensitivity [Recovered/Resolved]

NARRATIVE: CASE EVENT DATE: 200604
